FAERS Safety Report 5614123-2 (Version None)
Quarter: 2008Q1

REPORT INFORMATION
  Report Type: 
  Country: None (occurrence: None)
  Receive Date: 20080130
  Receipt Date: 20080122
  Transmission Date: 20080703
  Serious: Yes (Life-Threatening)
  Sender: FDA-Public Use
  Company Number: LTI2008A00025

PATIENT
  Age: 51 Year
  Sex: Female

DRUGS (7)
  1. ACTOS [Suspect]
     Indication: TYPE 2 DIABETES MELLITUS
     Dosage: 30 MG (30 MG,1 IN 1 D)
     Route: 048
     Dates: start: 20030101, end: 20070903
  2. GLUCOPHAGE [Suspect]
     Indication: TYPE 2 DIABETES MELLITUS
     Route: 048
     Dates: start: 20030101, end: 20070903
  3. BACTRIM DS [Concomitant]
  4. RAMIPRIL [Concomitant]
  5. EPIVIR [Suspect]
     Indication: HIV INFECTION
     Dosage: 300 MG (150 MG,2 IN 1 D)
     Route: 048
     Dates: end: 20070903
  6. VIREAD [Suspect]
     Indication: HIV INFECTION
     Dosage: 300 MG (300 MG,1 IN 1 D)
     Route: 048
     Dates: start: 20070827, end: 20070903
  7. KALETRA [Suspect]
     Indication: HIV INFECTION
     Dosage: (2 IN 1 D)
     Route: 048
     Dates: end: 20070903

REACTIONS (6)
  - DEHYDRATION [None]
  - DIARRHOEA [None]
  - DRUG INTERACTION [None]
  - HYPERKALAEMIA [None]
  - LACTIC ACIDOSIS [None]
  - RENAL FAILURE ACUTE [None]
